FAERS Safety Report 9521381 (Version 1)
Quarter: 2013Q3

REPORT INFORMATION
  Report Type: Report from Study
  Country: CA (occurrence: CA)
  Receive Date: 20130913
  Receipt Date: 20130913
  Transmission Date: 20140515
  Serious: Yes (Other)
  Sender: FDA-Public Use
  Company Number: CA-JNJFOC-20130903907

PATIENT
  Sex: Male
  Weight: 95 kg

DRUGS (4)
  1. REMICADE [Suspect]
     Indication: RHEUMATOID ARTHRITIS
     Route: 042
     Dates: start: 20130417
  2. METHOTREXATE [Concomitant]
     Route: 065
  3. PLAQUENIL [Concomitant]
     Route: 065
  4. INSULIN [Concomitant]
     Route: 065

REACTIONS (1)
  - Renal disorder [Unknown]
